FAERS Safety Report 4387577-X (Version None)
Quarter: 2004Q2

REPORT INFORMATION
  Report Type: 
  Country: None (occurrence: None)
  Receive Date: 20040623
  Receipt Date: 20040608
  Transmission Date: 20050107
  Serious: Yes (Other)
  Sender: FDA-Public Use
  Company Number: US_0406103592

PATIENT
  Age: 58 Year
  Sex: Female

DRUGS (3)
  1. EVISTA [Suspect]
     Dates: start: 20000101
  2. FOSAMAX [Concomitant]
  3. CALCIUM WITH VITAMIN D [Concomitant]

REACTIONS (1)
  - ANKLE FRACTURE [None]
